FAERS Safety Report 7176378-5 (Version None)
Quarter: 2010Q4

REPORT INFORMATION
  Report Type: 
  Country: None (occurrence: None)
  Receive Date: 20101207
  Receipt Date: 20101125
  Transmission Date: 20110411
  Serious: Yes (Other)
  Sender: FDA-Public Use
  Company Number: 2010JP006115

PATIENT
  Age: 46 Year
  Sex: Female
  Weight: 67.4 kg

DRUGS (11)
  1. PROGRAF [Suspect]
     Indication: LIVER TRANSPLANT
     Dosage: 1 MG, BID, ORAL
     Route: 048
     Dates: start: 20080118, end: 20080122
  2. RITUXAN (RITUXIMAB) FORMULATION UNKNOWN [Concomitant]
  3. SOLU-MEDROL [Concomitant]
  4. PGE 1 (ALPROSTADIL) INJECTION [Concomitant]
  5. FUTHAN (NAFAMOSTAT MESILATE) FORMULATION UNKNOWN [Concomitant]
  6. PREDNISOLONE [Concomitant]
  7. CELLCEPT [Concomitant]
  8. TAMIFLU (OSELTAMIVIR) CAPSULE [Concomitant]
  9. WARFARIN SODIUM [Concomitant]
  10. GASTER (FAMOTIDINE) ORODISPERSIBLE CR TABLET [Concomitant]
  11. PERSANTIN (DIPYRIDAMOLE) TABLET [Concomitant]

REACTIONS (6)
  - CIRCULATORY COLLAPSE [None]
  - DEPRESSED LEVEL OF CONSCIOUSNESS [None]
  - INFLUENZA [None]
  - PNEUMONIA BACTERIAL [None]
  - SHOCK [None]
  - SINUS TACHYCARDIA [None]
